FAERS Safety Report 6963556-0 (Version None)
Quarter: 2010Q3

REPORT INFORMATION
  Report Type: 
  Country: None (occurrence: None)
  Receive Date: 20100902
  Receipt Date: 20100820
  Transmission Date: 20110219
  Serious: Yes (Other)
  Sender: FDA-Public Use
  Company Number: ES-ELI_LILLY_AND_COMPANY-ES201008006229

PATIENT
  Sex: Female
  Weight: 55.991 kg

DRUGS (10)
  1. FORTEO [Suspect]
     Indication: OSTEOPOROSIS
     Dosage: 20 UG, DAILY (1/D)
     Route: 058
     Dates: start: 20100212
  2. ARTILOG [Concomitant]
     Indication: ARTHRITIS
     Dosage: UNK, DAILY (1/D)
     Route: 065
  3. ZAMENE [Concomitant]
     Dosage: 6 MG0.5/24H
  4. LEVEMIR [Concomitant]
     Indication: DIABETES MELLITUS
     Dosage: 34 UI/MORNING, 10UI/NIGHT
     Route: 058
  5. LORAZEPAM [Concomitant]
     Indication: SLEEP DISORDER
     Dosage: UNK, DAILY (1/D)
     Route: 048
  6. ARAVA [Concomitant]
     Indication: RHEUMATOID ARTHRITIS
     Dosage: UNK, DAILY (1/D)
     Route: 048
  7. NATECAL D [Concomitant]
     Indication: OSTEOPOROSIS
     Dosage: UNK, 2/D
     Route: 048
  8. ASPIRIN [Concomitant]
     Indication: BLOOD DISORDER
     Dosage: UNK, DAILY (1/D)
     Route: 048
  9. ZALDIAR [Concomitant]
     Indication: PAIN
     Dosage: UNK, AS NEEDED
     Route: 048
  10. PRAVASTATIN [Concomitant]
     Indication: HYPERCHOLESTEROLAEMIA
     Dosage: UNK, DAILY (1/D)
     Route: 048

REACTIONS (1)
  - HYPOGLYCAEMIC UNCONSCIOUSNESS [None]
